FAERS Safety Report 7713587-8 (Version None)
Quarter: 2011Q3

REPORT INFORMATION
  Report Type: 
  Country: None (occurrence: None)
  Receive Date: 20110826
  Receipt Date: 20110825
  Transmission Date: 20111222
  Serious: Yes (Hospitalization, Other)
  Sender: FDA-Public Use
  Company Number: US-PFIZER INC-2011195580

PATIENT
  Sex: Male
  Weight: 145 kg

DRUGS (4)
  1. CHANTIX [Suspect]
     Indication: SMOKING CESSATION THERAPY
     Dosage: 0.5 MG, 1X/DAY
     Route: 048
     Dates: start: 20110602, end: 20110601
  2. SEROQUEL [Concomitant]
     Indication: BIPOLAR DISORDER
     Dosage: 150 MG, DAILY
  3. LAMICTAL [Concomitant]
     Indication: BIPOLAR DISORDER
     Dosage: UNK
  4. CHANTIX [Suspect]
     Dosage: 1 MG, 2X/DAY
     Route: 048
     Dates: end: 20110711

REACTIONS (5)
  - MEMORY IMPAIRMENT [None]
  - DEPRESSED MOOD [None]
  - OVERDOSE [None]
  - COMA [None]
  - SUICIDE ATTEMPT [None]
